FAERS Safety Report 15672983 (Version 1)
Quarter: 2020Q3

REPORT INFORMATION
  Report Type: Report from Study
  Country: FR (occurrence: FR)
  Receive Date: 20181129
  Receipt Date: 20181129
  Transmission Date: 20201104
  Serious: Yes (Death, Other)
  Sender: FDA-Public Use
  Company Number: FR-PFIZER INC-2018290636

PATIENT
  Age: 48 Year
  Sex: Female
  Weight: 50 kg

DRUGS (2)
  1. TALAZOPARIB. [Suspect]
     Active Substance: TALAZOPARIB
     Indication: BREAST CANCER METASTATIC
     Dosage: 1 MG, DAILY
     Route: 048
     Dates: start: 20180530, end: 20180702
  2. TALAZOPARIB. [Suspect]
     Active Substance: TALAZOPARIB
     Dosage: 0.75 MG, DAILY
     Route: 048
     Dates: start: 20180702, end: 20180810

REACTIONS (2)
  - Thrombocytopenia [Recovered/Resolved]
  - Death [Fatal]

NARRATIVE: CASE EVENT DATE: 20180613
